FAERS Safety Report 8264311-4 (Version None)
Quarter: 2012Q2

REPORT INFORMATION
  Report Type: 
  Country: None (occurrence: None)
  Receive Date: 20120406
  Receipt Date: 20120329
  Transmission Date: 20120825
  Serious: Yes (Hospitalization, Other)
  Sender: FDA-Public Use
  Company Number: CA-JNJFOC-20110704197

PATIENT
  Sex: Female
  Weight: 63 kg

DRUGS (3)
  1. IMURAN [Concomitant]
     Indication: PRODUCT USED FOR UNKNOWN INDICATION
     Route: 048
  2. REMICADE [Suspect]
     Route: 042
     Dates: start: 20100101
  3. REMICADE [Suspect]
     Indication: CROHN'S DISEASE
     Route: 042
     Dates: end: 20110816

REACTIONS (3)
  - BOWEL MOVEMENT IRREGULARITY [None]
  - CROHN'S DISEASE [None]
  - DRUG INEFFECTIVE [None]
